FAERS Safety Report 11573165 (Version 2)
Quarter: 2015Q4

REPORT INFORMATION
  Report Type: Spontaneous
  Country: US (occurrence: US)
  Receive Date: 20150916
  Receipt Date: 20151027
  Transmission Date: 20160304
  Serious: No
  Sender: FDA-Public Use
  Company Number: US-ELI_LILLY_AND_COMPANY-US200910007504

PATIENT
  Age: 83 Year
  Sex: Female

DRUGS (6)
  1. VALTRAX [Concomitant]
     Indication: HERPES ZOSTER
  2. YEAST [Concomitant]
     Active Substance: YEAST
  3. ATIVAN [Concomitant]
     Active Substance: LORAZEPAM
  4. ANTIBIOTICS [Concomitant]
     Active Substance: UNSPECIFIED INGREDIENT
  5. DARVOCET [Concomitant]
     Active Substance: ACETAMINOPHEN\PROPOXYPHENE HYDROCHLORIDE
     Indication: PAIN
  6. FORTEO [Suspect]
     Active Substance: TERIPARATIDE
     Indication: OSTEOPOROSIS
     Dosage: 20 UG, DAILY (1/D)
     Dates: start: 200909

REACTIONS (9)
  - Eye infection [Not Recovered/Not Resolved]
  - Gait disturbance [Unknown]
  - Malaise [Unknown]
  - Fall [Recovered/Resolved]
  - Herpes zoster [Not Recovered/Not Resolved]
  - Fatigue [Unknown]
  - Vertigo [Recovering/Resolving]
  - Ear infection [Not Recovered/Not Resolved]
  - Balance disorder [Unknown]

NARRATIVE: CASE EVENT DATE: 2009
